FAERS Safety Report 25081334 (Version 1)
Quarter: 2025Q1

REPORT INFORMATION
  Report Type: Spontaneous
  Country: US (occurrence: US)
  Receive Date: 20250316
  Receipt Date: 20250316
  Transmission Date: 20250408
  Serious: Yes (Other)
  Sender: SANOFI AVENTIS
  Company Number: US-SA-2025SA076030

PATIENT
  Age: 46 Year
  Sex: Female

DRUGS (1)
  1. DUPIXENT [Suspect]
     Active Substance: DUPILUMAB
     Indication: Eosinophilic oesophagitis
     Dosage: 300 MG, QW
     Route: 058

REACTIONS (11)
  - Suicidal ideation [Recovered/Resolved]
  - Urinary retention [Recovered/Resolved]
  - Gastrointestinal pain [Recovered/Resolved]
  - Anxiety [Recovered/Resolved]
  - Thyroid disorder [Recovered/Resolved]
  - Eosinophilic oesophagitis [Recovered/Resolved]
  - Secretion discharge [Recovered/Resolved]
  - Inflammation [Recovered/Resolved]
  - Dysbiosis [Recovered/Resolved]
  - Constipation [Recovered/Resolved]
  - Cough [Recovered/Resolved]
